FAERS Safety Report 23152077 (Version 1)
Quarter: 2023Q4

REPORT INFORMATION
  Report Type: Report from Study
  Country: CA (occurrence: CA)
  Receive Date: 20231107
  Receipt Date: 20231107
  Transmission Date: 20240110
  Serious: Yes (Other)
  Sender: FDA-Public Use
  Company Number: CA-CELLTRION INC.-2023CA021225

PATIENT

DRUGS (1)
  1. RITUXIMAB [Suspect]
     Active Substance: RITUXIMAB
     Indication: Neuromyelitis optica spectrum disorder
     Dosage: 1 GRAM 1 EVERY 6 MONTHS
     Route: 041

REACTIONS (4)
  - Neuromyelitis optica spectrum disorder [Unknown]
  - Drug intolerance [Unknown]
  - Off label use [Unknown]
  - Intentional product use issue [Unknown]
